FAERS Safety Report 9446320 (Version 1)
Quarter: 2013Q3

REPORT INFORMATION
  Report Type: Spontaneous
  Country: US (occurrence: US)
  Receive Date: 20130807
  Receipt Date: 20130807
  Transmission Date: 20140515
  Serious: No
  Sender: FDA-Public Use
  Company Number: US-AMGEN-USASP2013047794

PATIENT
  Age: 51 Year
  Sex: Male

DRUGS (2)
  1. ENBREL [Suspect]
     Indication: PSORIATIC ARTHROPATHY
     Dosage: 50 MG, QMO
     Route: 065
     Dates: start: 20100101
  2. METHOTREXATE [Concomitant]
     Dosage: 125 MG, QWK

REACTIONS (3)
  - Inflammation [Not Recovered/Not Resolved]
  - Cyst [Recovered/Resolved]
  - Localised infection [Recovered/Resolved]
